FAERS Safety Report 26172447 (Version 1)
Quarter: 2025Q4

REPORT INFORMATION
  Report Type: Spontaneous
  Country: CH (occurrence: CH)
  Receive Date: 20251218
  Receipt Date: 20251218
  Transmission Date: 20260118
  Serious: Yes (Other)
  Sender: STRIDES
  Company Number: None

PATIENT
  Age: 42 Year
  Sex: Female

DRUGS (6)
  1. PREDNISOLONE [Suspect]
     Active Substance: PREDNISOLONE
     Indication: Placental disorder
     Dosage: THERAPY INITIATED AT 6-8 WG
     Route: 048
  2. TACROLIMUS [Suspect]
     Active Substance: TACROLIMUS
     Indication: Placental disorder
     Dosage: PO BID FOR TROUGH LEVELS 6-8 NG/ML; THERAPY INITIATED AT 6-8 WG
     Route: 048
  3. METHYLPREDNISOLONE [Suspect]
     Active Substance: METHYLPREDNISOLONE
     Indication: Placental disorder
     Dosage: INTRAVENOUS BOLUS AT EACH IVIG INFUSION; THERAPY INITIATED AT 6-8 WG
     Route: 042
  4. HYDROXYCHLOROQUINE [Suspect]
     Active Substance: HYDROXYCHLOROQUINE
     Indication: Placental disorder
     Dosage: HYDROXYCHLOROQUINE PO BID 5 MG/KG/DAY; THERAPY INITIATED AT 6-8 WG
     Route: 048
  5. ASPIRIN [Suspect]
     Active Substance: ASPIRIN
     Indication: Placental disorder
     Dosage: THERAPY INITIATED AT 6-8 WG
     Route: 048
  6. ASPIRIN [Suspect]
     Active Substance: ASPIRIN
     Indication: Thrombosis prophylaxis

REACTIONS (3)
  - Gestational diabetes [Unknown]
  - Maternal exposure during pregnancy [Unknown]
  - Off label use [Unknown]
